FAERS Safety Report 5778682-1 (Version None)
Quarter: 2008Q2

REPORT INFORMATION
  Report Type: 
  Country: None (occurrence: None)
  Receive Date: 20080619
  Receipt Date: 20080609
  Transmission Date: 20081010
  Serious: Yes (Hospitalization)
  Sender: FDA-Public Use
  Company Number: B0525011A

PATIENT
  Age: 58 Year
  Sex: Male

DRUGS (5)
  1. CEFUROXIME [Suspect]
     Dosage: 250MG TWICE PER DAY
     Route: 048
     Dates: start: 20080404, end: 20080405
  2. CELESTONE [Suspect]
     Dosage: 1TAB PER DAY
     Route: 048
     Dates: start: 20080404, end: 20080408
  3. DERINOX [Suspect]
     Route: 045
     Dates: start: 20080404, end: 20080408
  4. POLERY [Suspect]
     Route: 048
     Dates: start: 20080404, end: 20080408
  5. ORELOX [Concomitant]
     Route: 048
     Dates: start: 20080405, end: 20080410

REACTIONS (15)
  - ABDOMINAL PAIN UPPER [None]
  - ASPARTATE AMINOTRANSFERASE INCREASED [None]
  - ASTHENIA [None]
  - BLOOD LACTATE DEHYDROGENASE INCREASED [None]
  - BONE MARROW MYELOGRAM ABNORMAL [None]
  - CHROMATURIA [None]
  - COMPLEMENT FACTOR INCREASED [None]
  - HAEMOGLOBIN DECREASED [None]
  - HAEMOLYSIS [None]
  - NAUSEA [None]
  - NIGHT SWEATS [None]
  - RENAL IMPAIRMENT [None]
  - THROMBOCYTOPENIA [None]
  - THROMBOTIC MICROANGIOPATHY [None]
  - TYPE III IMMUNE COMPLEX MEDIATED REACTION [None]
